FAERS Safety Report 9740204 (Version 2)
Quarter: 2013Q4

REPORT INFORMATION
  Report Type: Spontaneous
  Country: US (occurrence: US)
  Receive Date: 20131209
  Receipt Date: 20131223
  Transmission Date: 20140711
  Serious: Yes (Other)
  Sender: FDA-Public Use
  Company Number: US-PFIZER INC-2013349763

PATIENT
  Age: 82 Year
  Sex: Female
  Weight: 53.5 kg

DRUGS (1)
  1. PREMARIN [Suspect]
     Indication: VULVOVAGINAL DRYNESS
     Dosage: 0.5 G, WEEKLY
     Route: 067

REACTIONS (1)
  - Urinary tract infection [Unknown]
